FAERS Safety Report 15902634 (Version 1)
Quarter: 2019Q1

REPORT INFORMATION
  Report Type: Spontaneous
  Country: JP (occurrence: JP)
  Receive Date: 20190202
  Receipt Date: 20190202
  Transmission Date: 20190417
  Serious: Yes (Hospitalization, Other)
  Sender: FDA-Public Use
  Company Number: JP-AMGEN-JPNSP2019011226

PATIENT
  Age: 82 Year
  Sex: Female

DRUGS (25)
  1. ASPARA-CA [Concomitant]
     Active Substance: CALCIUM ASPARTATE
     Dosage: 1 DF, TID
     Route: 065
  2. MIYA-BM [Concomitant]
     Active Substance: CLOSTRIDIUM BUTYRICUM SPORES STRAIN M-55
     Dosage: 1 G, TID
     Route: 065
     Dates: start: 20181222, end: 20190115
  3. URSODEOXYCHOLIC ACID [Concomitant]
     Active Substance: URSODIOL
     Dosage: 100 MG, TID
     Route: 065
     Dates: start: 20181222, end: 20190115
  4. CALFINA [Suspect]
     Active Substance: ALFACALCIDOL
     Indication: PRODUCT USED FOR UNKNOWN INDICATION
     Dosage: 1 MUG, QD
     Route: 065
     Dates: start: 20181222, end: 20190115
  5. BIOFERMIN [Concomitant]
     Active Substance: BACILLUS SUBTILIS\LACTOBACILLUS ACIDOPHILUS\STREPTOCOCCUS FAECAIS
     Dosage: 1 DF, TID
     Route: 065
     Dates: start: 20181222, end: 20190115
  6. BIOFERMIN R [Concomitant]
     Active Substance: BACILLUS SUBTILIS\LACTOBACILLUS ACIDOPHILUS\STREPTOCOCCUS FAECAIS
     Dosage: 1 DF, TID
     Route: 065
     Dates: start: 20181222, end: 20181227
  7. EBRANTIL [Concomitant]
     Active Substance: URAPIDIL
     Dosage: 2 DF, BID
     Route: 065
     Dates: start: 20181222, end: 20181227
  8. AKINETON [Concomitant]
     Active Substance: BIPERIDEN HYDROCHLORIDE
     Dosage: 1 MG, QD
     Route: 065
     Dates: start: 20181222, end: 20181227
  9. THYRADIN S [Concomitant]
     Active Substance: LEVOTHYROXINE SODIUM
     Dosage: 50 MUG, QD
     Route: 065
     Dates: start: 20181222, end: 20190115
  10. FERROUS CITRATE NA [Concomitant]
     Active Substance: SODIUM FERROUS CITRATE
     Dosage: 50 MG, QD
     Route: 065
     Dates: start: 20181222, end: 20190115
  11. MEMARY [Concomitant]
     Active Substance: MEMANTINE HYDROCHLORIDE
     Dosage: 5 MG, QD
     Route: 065
     Dates: start: 20181222, end: 20181227
  12. BELSOMRA [Concomitant]
     Active Substance: SUVOREXANT
     Dosage: 15 MG, QD
     Route: 065
     Dates: start: 20181222, end: 20181226
  13. PRALIA [Suspect]
     Active Substance: DENOSUMAB
     Indication: OSTEOPOROSIS
     Dosage: UNK
     Route: 065
  14. CALCIUM L-ASPARTATE HYDRATE [Suspect]
     Active Substance: ASPARTIC ACID
     Indication: PRODUCT USED FOR UNKNOWN INDICATION
     Dosage: 400 MG, TID
     Route: 065
     Dates: start: 20181222, end: 20190115
  15. ZYPREXA [Concomitant]
     Active Substance: OLANZAPINE
     Dosage: 1.25 MG, QD
     Route: 065
     Dates: start: 20181222, end: 20181227
  16. ALFACALCIDOL [Concomitant]
     Active Substance: ALFACALCIDOL
     Dosage: 1 MUG, UNK
     Route: 065
  17. AMBROXOL HYDROCHLORIDE [Concomitant]
     Active Substance: AMBROXOL HYDROCHLORIDE
     Dosage: 15 MG, TID
     Route: 065
     Dates: start: 20181222, end: 20190115
  18. DIAZEPAM. [Concomitant]
     Active Substance: DIAZEPAM
     Dosage: 2 MG, QD
     Route: 065
     Dates: start: 20181222, end: 20181226
  19. DIQUAS [Concomitant]
     Active Substance: DIQUAFOSOL TETRASODIUM
     Dosage: BOTH EYS, QID
     Route: 047
  20. LOPERAMIDE [Concomitant]
     Active Substance: LOPERAMIDE
     Dosage: 1 MG, BID
     Route: 065
     Dates: start: 20181222, end: 20190115
  21. METHYCOBAL [Concomitant]
     Active Substance: METHYLCOBALAMIN
     Dosage: 500 MUG, QD
     Route: 065
     Dates: start: 20181222, end: 20181227
  22. REBAMIPIDE [Concomitant]
     Active Substance: REBAMIPIDE
     Dosage: 100 MG, TID
     Route: 065
     Dates: start: 20181222, end: 20190115
  23. CAMOSTAT MESILATE [Concomitant]
     Active Substance: CAMOSTAT MESYLATE
     Dosage: 200 MG, TID
     Route: 065
     Dates: start: 20181222, end: 20190115
  24. FEBURIC [Concomitant]
     Active Substance: FEBUXOSTAT
     Dosage: 10 MG, QD
     Route: 065
     Dates: start: 20181222, end: 20190115
  25. RIVOTRIL [Concomitant]
     Active Substance: CLONAZEPAM
     Dosage: 0.5 MG, QD
     Route: 065
     Dates: start: 20181222, end: 20181227

REACTIONS (3)
  - Pneumonia aspiration [Recovered/Resolved]
  - Adjusted calcium increased [Not Recovered/Not Resolved]
  - Malaise [None]
